FAERS Safety Report 7300745-X (Version None)
Quarter: 2011Q1

REPORT INFORMATION
  Report Type: 
  Country: None (occurrence: None)
  Receive Date: 20110207
  Receipt Date: 20110131
  Transmission Date: 20110831
  Serious: Yes (Death)
  Sender: FDA-Public Use
  Company Number: 2011SP002380

PATIENT
  Age: 59 Year
  Sex: Male

DRUGS (10)
  1. TOLEDOMIN (MILNACIPRAN HYDROCHLORIDE) [Suspect]
     Indication: DEPRESSION
     Dosage: 159 MG;QD;PO
     Route: 048
     Dates: start: 20081128
  2. ZOLPIDEM TARTRATE [Concomitant]
  3. SEDAPRAN [Concomitant]
  4. NIMETAZEPAM [Concomitant]
  5. MIRTAZAPINE [Suspect]
     Indication: DEPRESSION
     Dosage: 30 MG;QD;PO
     Route: 048
     Dates: start: 20100427
  6. CANDESARTAN CILEXETIL [Concomitant]
  7. SULPRIDE (LEVOSULPIRIDE) [Suspect]
     Indication: DEPRESSION
     Dosage: 450 MG, QD, PO
     Route: 048
     Dates: start: 20070106
  8. FLUNITRAZEPAM [Concomitant]
  9. RILMAZAFONE HYDROCHLORIDE [Concomitant]
  10. NEUOMIL [Concomitant]

REACTIONS (1)
  - COMPLETED SUICIDE [None]
